FAERS Safety Report 8996158 (Version 1)
Quarter: 2013Q1

REPORT INFORMATION
  Report Type: Report from Study
  Country: US (occurrence: US)
  Receive Date: 20130103
  Receipt Date: 20130103
  Transmission Date: 20140127
  Serious: Yes (Other)
  Sender: FDA-Public Use
  Company Number: US-VERTEX PHARMACEUTICALS INC.-2013-000123

PATIENT
  Age: 49 Year
  Sex: Male
  Weight: 77.98 kg

DRUGS (5)
  1. VX-950 (TELAPREVIR) [Suspect]
     Indication: HEPATITIS C
     Dosage: 750 MG, TID
     Route: 048
     Dates: end: 201212
  2. PEGASYS [Suspect]
     Indication: HEPATITIS C
     Route: 058
  3. RIBAVIRIN [Suspect]
     Indication: HEPATITIS C
     Route: 048
  4. XANAX [Concomitant]
     Dosage: 0.25 MG, UNK
     Route: 048
  5. ULTRAM [Concomitant]
     Dosage: 50 MG, UNK
     Route: 048

REACTIONS (1)
  - Haemoglobin decreased [Unknown]
